FAERS Safety Report 8141355-4 (Version None)
Quarter: 2012Q1

REPORT INFORMATION
  Report Type: 
  Country: None (occurrence: None)
  Receive Date: 20120216
  Receipt Date: 20120206
  Transmission Date: 20120608
  Serious: Yes (Other)
  Sender: FDA-Public Use
  Company Number: JP-ROCHE-1037494

PATIENT
  Sex: Female

DRUGS (4)
  1. FERROUS CITRATE [Concomitant]
     Route: 048
     Dates: start: 20110201, end: 20111201
  2. MIRCERA [Suspect]
     Indication: NEPHROGENIC ANAEMIA
     Dosage: DOSAGE IS UNCERTAIN.
     Route: 058
     Dates: start: 20111104, end: 20111202
  3. MIRCERA [Suspect]
     Route: 058
  4. FERROUS CITRATE [Concomitant]
     Route: 048
     Dates: end: 20101101

REACTIONS (1)
  - ANAEMIA [None]
